FAERS Safety Report 4516427-3 (Version None)
Quarter: 2004Q4

REPORT INFORMATION
  Report Type: 
  Country: None (occurrence: None)
  Receive Date: 20041202
  Receipt Date: 20040608
  Transmission Date: 20050328
  Serious: No
  Sender: FDA-Public Use
  Company Number: US-GLAXOSMITHKLINE-A0513806A

PATIENT
  Age: 78 Year
  Sex: Female
  Weight: 59.5 kg

DRUGS (3)
  1. AUGMENTIN '125' [Suspect]
     Dosage: 1000MG TWICE PER DAY
     Route: 048
     Dates: start: 20040601, end: 20040601
  2. TETANUS SHOT [Concomitant]
     Route: 065
     Dates: start: 20040529
  3. ROCEPHIN [Concomitant]
     Route: 030
     Dates: start: 20040601

REACTIONS (3)
  - DYSPNOEA [None]
  - EAR PAIN [None]
  - OROPHARYNGEAL SWELLING [None]
